FAERS Safety Report 9850646 (Version 2)
Quarter: 2014Q1

REPORT INFORMATION
  Report Type: Spontaneous
  Country: US (occurrence: US)
  Receive Date: 20140128
  Receipt Date: 20140128
  Transmission Date: 20141002
  Serious: No
  Sender: FDA-Public Use
  Company Number: US-GILEAD-2012-0049401

PATIENT
  Age: 30 Year
  Sex: Female
  Weight: 57.5 kg

DRUGS (23)
  1. CAYSTON [Suspect]
     Indication: CYSTIC FIBROSIS
     Dosage: 75 MG, UNK
     Route: 055
     Dates: start: 2010
  2. CAYSTON [Suspect]
     Indication: PSEUDOMONAS INFECTION
  3. AQUADEKS [Concomitant]
  4. ASPIRIN [Concomitant]
  5. AZITHROMYCIN [Concomitant]
  6. BUDESONIDE [Concomitant]
  7. HYPERSAL 7% INHALATION NEBULIZATION SOLUTION [Concomitant]
  8. LANSOPRAZOLE [Concomitant]
  9. LEVEMIR [Concomitant]
  10. MULTIVITAMIN                       /00097801/ [Concomitant]
  11. NOVOLOG [Concomitant]
  12. PANCREASE                          /00014701/ [Concomitant]
  13. PERFOROMIST [Concomitant]
  14. POLYETHYLENE GLYCOL [Concomitant]
  15. PRENATAL VITAMINS                  /01549301/ [Concomitant]
  16. PROAIR HFA [Concomitant]
  17. PULMICORT [Concomitant]
  18. PULMOZYME [Concomitant]
  19. SINGULAIR [Concomitant]
  20. SYMBICORT [Concomitant]
  21. VITAMIN D                          /00107901/ [Concomitant]
  22. XOPENEX [Concomitant]
  23. ZANTAC [Concomitant]

REACTIONS (1)
  - Twin pregnancy [Unknown]
